FAERS Safety Report 9153479 (Version 1)
Quarter: 2013Q1

REPORT INFORMATION
  Report Type: Spontaneous
  Country: US (occurrence: None)
  Receive Date: 20130306
  Receipt Date: 20130306
  Transmission Date: 20140127
  Serious: Yes (Hospitalization)
  Sender: FDA-Public Use
  Company Number: None

PATIENT
  Sex: Female
  Weight: 58.9 kg

DRUGS (1)
  1. LYMPHAZURIN BLUE DYE [Suspect]
     Dosage: 2 ML

REACTIONS (3)
  - Hypotension [None]
  - Urticaria [None]
  - Hypersensitivity [None]
